FAERS Safety Report 7312830-7 (Version None)
Quarter: 2011Q1

REPORT INFORMATION
  Report Type: 
  Country: None (occurrence: None)
  Receive Date: 20110224
  Receipt Date: 20101129
  Transmission Date: 20110831
  Serious: No
  Sender: FDA-Public Use
  Company Number: US-MYLANLABS-2010S1018617

PATIENT
  Age: 30 Year
  Sex: Female
  Weight: 62.6 kg

DRUGS (12)
  1. PROTONIX [Concomitant]
     Indication: ULCER
     Route: 048
  2. CETIRIZINE W/PSEUDOEPHEDRINE [Concomitant]
  3. MULTI-VITAMIN [Concomitant]
  4. PROVENTIL [Concomitant]
  5. PRAVASTATIN [Concomitant]
     Indication: BLOOD CHOLESTEROL
     Route: 048
  6. CHLOROQUIN PHOSPHATE [Concomitant]
  7. VANDAZOLE [Concomitant]
  8. METOPROLOL TARTRATE [Suspect]
     Indication: MIGRAINE PROPHYLAXIS
     Route: 048
     Dates: start: 20091215
  9. PLAVIX [Concomitant]
     Indication: BLOOD CHOLESTEROL
     Route: 048
  10. AMITRIPTYLINE HCL [Concomitant]
     Indication: MIGRAINE
     Route: 048
  11. VITAMIN D [Concomitant]
  12. FISH OIL [Concomitant]

REACTIONS (2)
  - CHEST PAIN [None]
  - WEIGHT INCREASED [None]
